FAERS Safety Report 16525502 (Version 2)
Quarter: 2019Q3

REPORT INFORMATION
  Report Type: Report from Study
  Country: None (occurrence: DE)
  Receive Date: 20190702
  Receipt Date: 20190709
  Transmission Date: 20191004
  Serious: Yes (Hospitalization, Other)
  Sender: FDA-Public Use
  Company Number: DE-ABBVIE-19K-062-2839104-00

PATIENT
  Sex: Male
  Weight: 95 kg

DRUGS (1)
  1. HUMIRA [Suspect]
     Active Substance: ADALIMUMAB
     Indication: PSORIASIS
     Route: 058
     Dates: start: 20140305, end: 20190509

REACTIONS (2)
  - Skin lesion [Unknown]
  - Lichenoid keratosis [Recovered/Resolved]
